FAERS Safety Report 7585308-3 (Version None)
Quarter: 2011Q2

REPORT INFORMATION
  Report Type: 
  Country: None (occurrence: None)
  Receive Date: 20110623
  Receipt Date: 20110502
  Transmission Date: 20111010
  Serious: No
  Sender: FDA-Public Use
  Company Number: 201100265

PATIENT
  Age: 48 Year
  Sex: Female
  Weight: 62.5964 kg

DRUGS (1)
  1. OXYMETAZOLINE HCL [Suspect]
     Dosage: AS DIRECTED, 2 DAYS
     Dates: start: 20110403, end: 20110404

REACTIONS (1)
  - ANOSMIA [None]
